FAERS Safety Report 7367711-X (Version None)
Quarter: 2011Q1

REPORT INFORMATION
  Report Type: 
  Country: None (occurrence: None)
  Receive Date: 20110311
  Receipt Date: 20110228
  Transmission Date: 20110831
  Serious: Yes (Life-Threatening, Hospitalization, Other)
  Sender: FDA-Public Use
  Company Number: 113583

PATIENT
  Age: 36 Year
  Sex: Female
  Weight: 82 kg

DRUGS (2)
  1. ETOPOSIDE [Suspect]
     Indication: NON-SMALL CELL LUNG CANCER STAGE III
     Dosage: 110MG IV
     Route: 042
     Dates: start: 20100510, end: 20100611
  2. REFER TO CIOMS CA201008008139(25FEB2011)FOR DETAILS [Concomitant]

REACTIONS (7)
  - DYSPHAGIA [None]
  - ORTHOPNOEA [None]
  - HAEMOPTYSIS [None]
  - DYSPNOEA PAROXYSMAL NOCTURNAL [None]
  - BRONCHIAL FISTULA [None]
  - OESOPHAGITIS [None]
  - PNEUMONIA [None]
